FAERS Safety Report 8921359 (Version 1)
Quarter: 2012Q4

REPORT INFORMATION
  Report Type: 
  Country: US (occurrence: US)
  Receive Date: 20121121
  Receipt Date: 20121121
  Transmission Date: 20130627
  Serious: Yes (Other)
  Sender: FDA-Public Use
  Company Number: US-TEVA-371237USA

PATIENT
  Age: 42 Year
  Sex: Female

DRUGS (4)
  1. AMPHETAMINE W/DEXTROAMPHETAMINE [Suspect]
     Indication: DEPRESSION
     Route: 065
  2. QUETIAPINE [Suspect]
     Indication: DEPRESSION
     Route: 065
  3. CITALOPRAM [Suspect]
     Indication: DEPRESSION
     Route: 065
  4. ONDANSETRON [Suspect]
     Dosage: Single dose administered intraoperatively
     Route: 065

REACTIONS (1)
  - Serotonin syndrome [Recovered/Resolved]
